FAERS Safety Report 8029148-X (Version None)
Quarter: 2012Q1

REPORT INFORMATION
  Report Type: 
  Country: None (occurrence: None)
  Receive Date: 20120106
  Receipt Date: 20120102
  Transmission Date: 20120608
  Serious: Yes (Other)
  Sender: FDA-Public Use
  Company Number: PHHY2011DK099924

PATIENT
  Sex: Female

DRUGS (2)
  1. GLEEVEC [Suspect]
     Dosage: 400 MG, ONCE DAILY
     Dates: start: 20110728
  2. GLEEVEC [Suspect]
     Indication: CHRONIC MYELOID LEUKAEMIA
     Dosage: 400 MG, ONCE DAILY
     Dates: start: 20101214, end: 20110624

REACTIONS (3)
  - THYROID CYST [None]
  - NEUTROPENIA [None]
  - HEPATIC ENZYME ABNORMAL [None]
